FAERS Safety Report 12202040 (Version 1)
Quarter: 2016Q1

REPORT INFORMATION
  Report Type: Spontaneous
  Country: TR (occurrence: TR)
  Receive Date: 20160322
  Receipt Date: 20160322
  Transmission Date: 20160526
  Serious: Yes (Hospitalization)
  Sender: FDA-Public Use
  Company Number: TR-GILEAD-2016-0201877

PATIENT
  Age: 27 Year
  Sex: Male
  Weight: 44 kg

DRUGS (9)
  1. CALCIMAX                           /00944201/ [Concomitant]
  2. FOSAMAX [Concomitant]
     Active Substance: ALENDRONATE SODIUM
  3. REVOLADE [Concomitant]
     Active Substance: ELTROMBOPAG
  4. HARVONI [Suspect]
     Active Substance: LEDIPASVIR\SOFOSBUVIR
     Indication: CHRONIC HEPATITIS C
     Dosage: 1 DF, QD
     Route: 048
     Dates: start: 20160115, end: 20160210
  5. SANDIMMUNE [Concomitant]
     Active Substance: CYCLOSPORINE
  6. COLCHICINE. [Concomitant]
     Active Substance: COLCHICINE
  7. LANSOR [Concomitant]
     Active Substance: LANSOPRAZOLE
  8. PREDNOL                            /00049601/ [Concomitant]
     Active Substance: METHYLPREDNISOLONE
  9. URIKOLIZ [Concomitant]
     Active Substance: ALLOPURINOL

REACTIONS (4)
  - Rash [Unknown]
  - Dermatitis acneiform [Recovering/Resolving]
  - Mouth haemorrhage [Recovering/Resolving]
  - Oral candidiasis [Recovering/Resolving]

NARRATIVE: CASE EVENT DATE: 201602
